FAERS Safety Report 10061173 (Version 1)
Quarter: 2014Q2

REPORT INFORMATION
  Report Type: Spontaneous
  Country: NG (occurrence: NG)
  Receive Date: 20140407
  Receipt Date: 20140407
  Transmission Date: 20141212
  Serious: Yes (Other)
  Sender: FDA-Public Use
  Company Number: NG-ROCHE-1373166

PATIENT
  Age: 60 Year
  Sex: Male

DRUGS (1)
  1. MIRCERA [Suspect]
     Indication: ANAEMIA
     Route: 065

REACTIONS (1)
  - Treatment failure [Unknown]
